FAERS Safety Report 4973928-1 (Version None)
Quarter: 2006Q2

REPORT INFORMATION
  Report Type: 
  Country: None (occurrence: None)
  Receive Date: 20060417
  Receipt Date: 20050207
  Transmission Date: 20061013
  Serious: Yes (Other)
  Sender: FDA-Public Use
  Company Number: 2005UW02227

PATIENT
  Age: 18895 Day
  Sex: Female

DRUGS (6)
  1. SEROQUEL [Suspect]
     Indication: MAJOR DEPRESSION
     Route: 048
     Dates: start: 20041102, end: 20050119
  2. SEROQUEL [Suspect]
     Indication: ANXIETY
     Route: 048
     Dates: start: 20041102, end: 20050119
  3. WELLBUTRIN SR [Concomitant]
     Indication: DEPRESSION
     Route: 048
     Dates: start: 20030118
  4. LORAZEPAM [Concomitant]
     Indication: ANXIETY
     Route: 048
     Dates: start: 20020307, end: 20050523
  5. ZYPREXA [Concomitant]
     Indication: DEPRESSION
     Route: 048
     Dates: start: 20020815, end: 20041124
  6. ZYPREXA [Concomitant]
     Indication: ANXIETY
     Route: 048
     Dates: start: 20020815, end: 20041124

REACTIONS (3)
  - INFLUENZA [None]
  - NEUTROPENIA [None]
  - PNEUMONIA [None]
